FAERS Safety Report 9471403 (Version 2)
Quarter: 2013Q3

REPORT INFORMATION
  Report Type: Report from Study
  Country: ES (occurrence: ES)
  Receive Date: 20130822
  Receipt Date: 20130827
  Transmission Date: 20140515
  Serious: Yes (Life-Threatening, Hospitalization)
  Sender: FDA-Public Use
  Company Number: ES-BAYER-2013-101404

PATIENT
  Age: 74 Year
  Sex: Male

DRUGS (5)
  1. ADIRO 100 MG COMPRIMIDOS GASTRORRESISTENTES EFG, 500 COMPRIMIDOS [Suspect]
     Indication: PERIPHERAL ARTERIAL OCCLUSIVE DISEASE
     Dosage: 100 MG, QD
     Route: 048
     Dates: start: 20130711, end: 20130719
  2. AMLODIPINO RATIOPHARM [Concomitant]
     Indication: HYPERTENSION
     Route: 048
  3. CAPTOPRIL [Concomitant]
     Indication: HYPERTENSION
     Dosage: 10 MG, QD
     Route: 048
  4. SIMVASTATINA DAVUR [Concomitant]
     Indication: DYSLIPIDAEMIA
     Dosage: 20 MG, QD
     Route: 048
  5. HIDROSALURETIL [Concomitant]
     Indication: HYPERTENSION
     Dosage: 50 MG, QD
     Route: 048

REACTIONS (2)
  - Large intestine perforation [Recovering/Resolving]
  - Anaemia [Recovering/Resolving]
